FAERS Safety Report 7787716-4 (Version None)
Quarter: 2011Q3

REPORT INFORMATION
  Report Type: 
  Country: None (occurrence: None)
  Receive Date: 20110929
  Receipt Date: 20110926
  Transmission Date: 20111222
  Serious: Yes (Hospitalization)
  Sender: FDA-Public Use
  Company Number: FI-MERCK-1109FIN00010

PATIENT
  Age: 49 Year
  Sex: Female

DRUGS (2)
  1. JANUMET [Suspect]
     Indication: DIABETES MELLITUS
     Route: 048
     Dates: start: 20100329
  2. ESTRADIOL [Concomitant]
     Indication: MENOPAUSAL SYMPTOMS
     Route: 061
     Dates: start: 20070625

REACTIONS (1)
  - BILE DUCT STENOSIS [None]
